FAERS Safety Report 17342804 (Version 1)
Quarter: 2020Q1

REPORT INFORMATION
  Report Type: Spontaneous
  Country: US (occurrence: US)
  Receive Date: 20200129
  Receipt Date: 20200129
  Transmission Date: 20200409
  Serious: Yes (Other)
  Sender: FDA-Public Use
  Company Number: US-JNJFOC-20200135867

PATIENT
  Sex: Female

DRUGS (1)
  1. LEVAQUIN [Suspect]
     Active Substance: LEVOFLOXACIN
     Indication: CELLULITIS
     Route: 048

REACTIONS (6)
  - Neuropathy peripheral [Recovering/Resolving]
  - Gastrointestinal haemorrhage [Unknown]
  - Amnesia [Unknown]
  - Fatigue [Unknown]
  - Tendon disorder [Unknown]
  - Rash [Unknown]
